FAERS Safety Report 19775334 (Version 1)
Quarter: 2021Q3

REPORT INFORMATION
  Report Type: Report from Study
  Country: IT (occurrence: IT)
  Receive Date: 20210901
  Receipt Date: 20210901
  Transmission Date: 20211014
  Serious: Yes (Other)
  Sender: FDA-Public Use
  Company Number: IT-JNJFOC-20210856983

PATIENT
  Sex: Female

DRUGS (2)
  1. ILOPROST. [Suspect]
     Active Substance: ILOPROST
     Indication: SYSTEMIC SCLERODERMA
     Route: 042
  2. STAYVEER [Suspect]
     Active Substance: BOSENTAN
     Indication: SYSTEMIC SCLERODERMA
     Route: 065

REACTIONS (4)
  - Pre-eclampsia [Unknown]
  - Product use in unapproved indication [Unknown]
  - Off label use [Unknown]
  - Exposure during pregnancy [Unknown]
